FAERS Safety Report 18170095 (Version 76)
Quarter: 2025Q2

REPORT INFORMATION
  Report Type: Report from Study
  Country: US (occurrence: US)
  Receive Date: 20200819
  Receipt Date: 20250620
  Transmission Date: 20250717
  Serious: Yes (Hospitalization, Other)
  Sender: TAKEDA
  Company Number: US-SHIRE-US202005478

PATIENT
  Age: 59 Year
  Sex: Female

DRUGS (57)
  1. LANADELUMAB [Suspect]
     Active Substance: LANADELUMAB
     Indication: Hereditary angioedema
  2. LANADELUMAB [Suspect]
     Active Substance: LANADELUMAB
     Indication: Immune system disorder
  3. LANADELUMAB [Suspect]
     Active Substance: LANADELUMAB
     Dosage: 300 MILLIGRAM, Q2WEEKS
     Dates: start: 20180828
  4. LANADELUMAB [Suspect]
     Active Substance: LANADELUMAB
  5. LANADELUMAB [Suspect]
     Active Substance: LANADELUMAB
     Dosage: 300 MILLIGRAM, 3/MONTH
     Dates: start: 20180918
  6. LANADELUMAB [Suspect]
     Active Substance: LANADELUMAB
  7. LANADELUMAB [Suspect]
     Active Substance: LANADELUMAB
  8. LANADELUMAB [Suspect]
     Active Substance: LANADELUMAB
     Dosage: 300 MILLIGRAM, 3/MONTH
  9. LANADELUMAB [Suspect]
     Active Substance: LANADELUMAB
  10. LANADELUMAB [Suspect]
     Active Substance: LANADELUMAB
     Dosage: 300 MILLIGRAM, Q2WEEKS
     Dates: start: 2019
  11. LANADELUMAB [Suspect]
     Active Substance: LANADELUMAB
     Dosage: 300 MILLIGRAM, Q2WEEKS
     Dates: start: 20190709
  12. LANADELUMAB [Suspect]
     Active Substance: LANADELUMAB
  13. LANADELUMAB [Suspect]
     Active Substance: LANADELUMAB
  14. LANADELUMAB [Suspect]
     Active Substance: LANADELUMAB
  15. LANADELUMAB [Suspect]
     Active Substance: LANADELUMAB
     Dosage: 300 MILLIGRAM, Q2WEEKS
     Dates: start: 2020
  16. LANADELUMAB [Suspect]
     Active Substance: LANADELUMAB
  17. LANADELUMAB [Suspect]
     Active Substance: LANADELUMAB
  18. LANADELUMAB [Suspect]
     Active Substance: LANADELUMAB
  19. LANADELUMAB [Suspect]
     Active Substance: LANADELUMAB
     Dosage: 300 MILLIGRAM, Q2WEEKS
  20. LANADELUMAB [Suspect]
     Active Substance: LANADELUMAB
  21. LANADELUMAB [Suspect]
     Active Substance: LANADELUMAB
     Dosage: 300 MILLIGRAM, Q2WEEKS
  22. LANADELUMAB [Suspect]
     Active Substance: LANADELUMAB
  23. KALBITOR [Suspect]
     Active Substance: ECALLANTIDE
     Indication: Immune system disorder
  24. KALBITOR [Suspect]
     Active Substance: ECALLANTIDE
  25. KALBITOR [Suspect]
     Active Substance: ECALLANTIDE
  26. KALBITOR [Suspect]
     Active Substance: ECALLANTIDE
  27. KALBITOR [Suspect]
     Active Substance: ECALLANTIDE
  28. KALBITOR [Suspect]
     Active Substance: ECALLANTIDE
  29. KALBITOR [Suspect]
     Active Substance: ECALLANTIDE
  30. KALBITOR [Suspect]
     Active Substance: ECALLANTIDE
  31. KALBITOR [Suspect]
     Active Substance: ECALLANTIDE
  32. KALBITOR [Suspect]
     Active Substance: ECALLANTIDE
  33. KALBITOR [Suspect]
     Active Substance: ECALLANTIDE
  34. FIRAZYR [Suspect]
     Active Substance: ICATIBANT ACETATE
     Indication: Immune system disorder
  35. FIRAZYR [Suspect]
     Active Substance: ICATIBANT ACETATE
     Indication: Myasthenia gravis
  36. FIRAZYR [Suspect]
     Active Substance: ICATIBANT ACETATE
  37. FIRAZYR [Suspect]
     Active Substance: ICATIBANT ACETATE
  38. FIRAZYR [Suspect]
     Active Substance: ICATIBANT ACETATE
  39. FIRAZYR [Suspect]
     Active Substance: ICATIBANT ACETATE
  40. FIRAZYR [Suspect]
     Active Substance: ICATIBANT ACETATE
  41. FIRAZYR [Suspect]
     Active Substance: ICATIBANT ACETATE
  42. FIRAZYR [Suspect]
     Active Substance: ICATIBANT ACETATE
  43. FIRAZYR [Suspect]
     Active Substance: ICATIBANT ACETATE
  44. FIRAZYR [Suspect]
     Active Substance: ICATIBANT ACETATE
  45. FIRAZYR [Suspect]
     Active Substance: ICATIBANT ACETATE
  46. FIRAZYR [Suspect]
     Active Substance: ICATIBANT ACETATE
  47. FIRAZYR [Suspect]
     Active Substance: ICATIBANT ACETATE
  48. FIRAZYR [Suspect]
     Active Substance: ICATIBANT ACETATE
  49. CUVITRU [Suspect]
     Active Substance: HUMAN IMMUNOGLOBULIN G
     Indication: Myasthenia gravis
  50. HEPARIN SODIUM [Concomitant]
     Active Substance: HEPARIN SODIUM
  51. GAMUNEX-C [Concomitant]
     Active Substance: HUMAN IMMUNOGLOBULIN G
     Indication: Myasthenia gravis
  52. RUCONEST [Concomitant]
     Active Substance: CONESTAT ALFA
  53. RUCONEST [Concomitant]
     Active Substance: CONESTAT ALFA
  54. RUCONEST [Concomitant]
     Active Substance: CONESTAT ALFA
  55. DIPHENHYDRAMINE [Concomitant]
     Active Substance: DIPHENHYDRAMINE
  56. SODIUM CHLORIDE [Concomitant]
     Active Substance: SODIUM CHLORIDE
  57. STERILE WATER [Concomitant]
     Active Substance: WATER

REACTIONS (14)
  - Myasthenia gravis [Recovered/Resolved]
  - Breast cancer [Unknown]
  - Hereditary angioedema [Recovered/Resolved]
  - COVID-19 [Unknown]
  - Wheezing [Unknown]
  - Cough [Recovered/Resolved]
  - Stress [Unknown]
  - Dyspnoea [Unknown]
  - Drug ineffective [Unknown]
  - Off label use [Unknown]
  - Nerve compression [Unknown]
  - Weight decreased [Unknown]
  - Respiratory disorder [Unknown]
  - Diarrhoea [Recovered/Resolved]

NARRATIVE: CASE EVENT DATE: 20151001
